FAERS Safety Report 21999746 (Version 1)
Quarter: 2023Q1

REPORT INFORMATION
  Report Type: Spontaneous
  Country: US (occurrence: None)
  Receive Date: 20230214
  Receipt Date: 20230214
  Transmission Date: 20230418
  Serious: Yes (Other)
  Sender: FDA-Public Use
  Company Number: None

PATIENT
  Age: 41 Year
  Sex: Male
  Weight: 171.0 kg

DRUGS (1)
  1. LEVOTHYROXINE [Suspect]
     Active Substance: LEVOTHYROXINE
     Indication: Basedow^s disease
     Dosage: OTHER QUANTITY : 25,50,200MG;?FREQUENCY : DAILY;?
     Route: 048
     Dates: start: 2021

REACTIONS (2)
  - Dyspepsia [None]
  - Abdominal pain upper [None]
